FAERS Safety Report 7791029-4 (Version None)
Quarter: 2011Q4

REPORT INFORMATION
  Report Type: 
  Country: None (occurrence: None)
  Receive Date: 20111003
  Receipt Date: 20110923
  Transmission Date: 20120403
  Serious: Yes (Other)
  Sender: FDA-Public Use
  Company Number: US-BIOGENIDEC-2011BI033586

PATIENT
  Age: 43 Year
  Sex: Female

DRUGS (2)
  1. TYSABRI [Suspect]
     Route: 042
     Dates: start: 20110401, end: 20110401
  2. TYSABRI [Suspect]
     Indication: MULTIPLE SCLEROSIS
     Route: 042
     Dates: start: 20080306, end: 20110220

REACTIONS (6)
  - NEUROLOGICAL SYMPTOM [None]
  - CONVULSION [None]
  - LOSS OF CONSCIOUSNESS [None]
  - OPTIC NEURITIS [None]
  - WEIGHT DECREASED [None]
  - DEPRESSION [None]
